FAERS Safety Report 25548291 (Version 1)
Quarter: 2025Q3

REPORT INFORMATION
  Report Type: Spontaneous
  Country: US (occurrence: US)
  Receive Date: 20250714
  Receipt Date: 20250714
  Transmission Date: 20251021
  Serious: No
  Sender: BIOGEN
  Company Number: US-BIOGEN-2025BI01316729

PATIENT
  Sex: Female

DRUGS (8)
  1. VUMERITY [Suspect]
     Active Substance: DIROXIMEL FUMARATE
     Indication: Multiple sclerosis
     Route: 050
  2. PROTONIX [Concomitant]
     Active Substance: PANTOPRAZOLE SODIUM
     Route: 050
  3. ALBUTEROL [Concomitant]
     Active Substance: ALBUTEROL
     Route: 050
  4. SYMBICORT [Concomitant]
     Active Substance: BUDESONIDE\FORMOTEROL FUMARATE DIHYDRATE
     Route: 050
  5. HYDROCHLOROTHIAZIDE [Concomitant]
     Active Substance: HYDROCHLOROTHIAZIDE
     Route: 050
  6. LEXAPRO [Concomitant]
     Active Substance: ESCITALOPRAM OXALATE
     Route: 050
  7. ZYRTEC [Concomitant]
     Active Substance: CETIRIZINE HYDROCHLORIDE
     Route: 050
  8. SINGULAIR [Concomitant]
     Active Substance: MONTELUKAST SODIUM
     Route: 050

REACTIONS (1)
  - Drug ineffective [Unknown]
